FAERS Safety Report 23316202 (Version 9)
Quarter: 2025Q4

REPORT INFORMATION
  Report Type: Spontaneous
  Country: US (occurrence: US)
  Receive Date: 20231219
  Receipt Date: 20251127
  Transmission Date: 20260117
  Serious: No
  Sender: ROCHE
  Company Number: US-ROCHE-3353439

PATIENT
  Age: 55 Year
  Sex: Male
  Weight: 79.38 kg

DRUGS (3)
  1. HEMLIBRA [Suspect]
     Active Substance: EMICIZUMAB-KXWH
     Indication: Factor VIII deficiency
     Dosage: STRENGTH- 60MG/ 0.4 ML
     Route: 058
     Dates: start: 202210
  2. TRAMADOL [Concomitant]
     Active Substance: TRAMADOL
  3. TYLENOL [Concomitant]
     Active Substance: ACETAMINOPHEN

REACTIONS (7)
  - Haemorrhage [Unknown]
  - Pain [Unknown]
  - Haemorrhage [Unknown]
  - Arthralgia [Unknown]
  - Haemorrhage [Recovered/Resolved]
  - Weight increased [Unknown]
  - Haemorrhage [Unknown]

NARRATIVE: CASE EVENT DATE: 20230922
